FAERS Safety Report 10246963 (Version 1)
Quarter: 2014Q2

REPORT INFORMATION
  Report Type: Spontaneous
  Country: US (occurrence: None)
  Receive Date: 20140617
  Receipt Date: 20140617
  Transmission Date: 20141212
  Serious: Yes (Hospitalization)
  Sender: FDA-Public Use
  Company Number: None

PATIENT
  Age: 61 Year
  Sex: Female
  Weight: 58.06 kg

DRUGS (6)
  1. FOLFIRINOX [Suspect]
     Indication: PANCREATIC CARCINOMA
     Route: 042
  2. PF-04136309 [Suspect]
     Indication: PANCREATIC CARCINOMA
     Route: 048
  3. IRINOTECAN (254MG) [Concomitant]
  4. OXALIPLATIN (110MG) [Concomitant]
  5. FLUOROURACIL BOLUS (541MG) [Concomitant]
  6. FLUOROURACIL CIVI (3311MG) [Concomitant]

REACTIONS (3)
  - Post procedural haemorrhage [None]
  - Catheter site haemorrhage [None]
  - Surgical procedure repeated [None]
